FAERS Safety Report 12385147 (Version 1)
Quarter: 2016Q2

REPORT INFORMATION
  Report Type: Spontaneous
  Country: FR (occurrence: FR)
  Receive Date: 20160519
  Receipt Date: 20160519
  Transmission Date: 20160815
  Serious: Yes (Hospitalization)
  Sender: FDA-Public Use
  Company Number: FR-PFIZER INC-2016264869

PATIENT
  Age: 87 Year
  Sex: Female

DRUGS (3)
  1. CORDARONE [Suspect]
     Active Substance: AMIODARONE HYDROCHLORIDE
     Dosage: UNK
     Route: 048
  2. MOPRAL [Suspect]
     Active Substance: OMEPRAZOLE SODIUM
     Dosage: UNK
     Route: 048
  3. PRITOR [Suspect]
     Active Substance: TELMISARTAN
     Dosage: UNK
     Route: 048

REACTIONS (2)
  - Pruritus [Recovered/Resolved]
  - Granulomatous dermatitis [Recovered/Resolved]

NARRATIVE: CASE EVENT DATE: 201512
